FAERS Safety Report 25849207 (Version 1)
Quarter: 2025Q3

REPORT INFORMATION
  Report Type: Spontaneous
  Country: EU (occurrence: EU)
  Receive Date: 20250925
  Receipt Date: 20250925
  Transmission Date: 20251021
  Serious: Yes (Other)
  Sender: MERCK SHARP & DOHME LLC
  Company Number: EU-Accord-504540

PATIENT
  Age: 14 Year
  Sex: Male

DRUGS (2)
  1. PEMBROLIZUMAB [Suspect]
     Active Substance: PEMBROLIZUMAB
     Indication: Hodgkin^s disease nodular sclerosis
     Dosage: ON DAY 1, ADMINISTERED EVERY 21 DAYS FOR 5 CYCLES
     Route: 042
     Dates: start: 202307, end: 202310
  2. BENDAMUSTINE [Suspect]
     Active Substance: BENDAMUSTINE
     Indication: Hodgkin^s disease nodular sclerosis
     Dosage: DAYS 1 AND 2, ADMINISTERED EVERY 21 DAYS FOR 5 CYCLES
     Dates: start: 202307, end: 202310

REACTIONS (2)
  - Neutropenia [Unknown]
  - Off label use [Unknown]

NARRATIVE: CASE EVENT DATE: 20230101
